FAERS Safety Report 5262610-1 (Version None)
Quarter: 2007Q1

REPORT INFORMATION
  Report Type: 
  Country: None (occurrence: None)
  Receive Date: 20070312
  Receipt Date: 20070305
  Transmission Date: 20070707
  Serious: Yes (Other)
  Sender: FDA-Public Use
  Company Number: HQWYE342422JUL04

PATIENT
  Sex: Female
  Weight: 88.53 kg

DRUGS (2)
  1. PREMARIN [Suspect]
     Dosage: UNKNOWN
     Dates: start: 19920101, end: 19990101
  2. PROVERA [Suspect]
     Dosage: UNKNOWN
     Dates: start: 19920101, end: 19990101

REACTIONS (1)
  - BREAST CANCER METASTATIC [None]
